FAERS Safety Report 25481968 (Version 1)
Quarter: 2025Q2

REPORT INFORMATION
  Report Type: Spontaneous
  Country: ES (occurrence: ES)
  Receive Date: 20250626
  Receipt Date: 20250626
  Transmission Date: 20250717
  Serious: Yes (Hospitalization)
  Sender: TEVA
  Company Number: None

PATIENT
  Age: 89 Year
  Sex: Male

DRUGS (3)
  1. LEVOFLOXACIN [Suspect]
     Active Substance: LEVOFLOXACIN
     Indication: Culture tissue specimen positive
     Dosage: LEVOFLOXACIN (2791A)
     Route: 048
     Dates: start: 20250306, end: 20250313
  2. RIFAMPIN [Suspect]
     Active Substance: RIFAMPIN
     Indication: Culture tissue specimen positive
     Dosage: RIFAMPICIN (2273A)
     Route: 048
     Dates: start: 20250306, end: 20250311
  3. TRAMADOL HYDROCHLORIDE [Concomitant]
     Active Substance: TRAMADOL HYDROCHLORIDE
     Indication: Pain
     Dosage: TRAMADOL HYDROCHLORIDE (2389CH)
     Route: 042
     Dates: start: 20250308

REACTIONS (2)
  - Mixed liver injury [Recovering/Resolving]
  - Hyperbilirubinaemia [Recovering/Resolving]

NARRATIVE: CASE EVENT DATE: 20250311
